FAERS Safety Report 8997212 (Version 3)
Quarter: 2013Q1

REPORT INFORMATION
  Report Type: Spontaneous
  Country: US (occurrence: US)
  Receive Date: 20130104
  Receipt Date: 20130128
  Transmission Date: 20140127
  Serious: Yes (Other)
  Sender: FDA-Public Use
  Company Number: US-JNJFOC-20130100893

PATIENT
  Sex: Female

DRUGS (1)
  1. ORTHO EVRA [Suspect]
     Indication: CONTRACEPTION
     Route: 062

REACTIONS (4)
  - Pulmonary embolism [Unknown]
  - Impaired work ability [Not Recovered/Not Resolved]
  - Chest pain [Recovering/Resolving]
  - Fatigue [Recovering/Resolving]
